FAERS Safety Report 5105256-8 (Version None)
Quarter: 2006Q3

REPORT INFORMATION
  Report Type: 
  Country: None (occurrence: None)
  Receive Date: 20060911
  Receipt Date: 20060829
  Transmission Date: 20061208
  Serious: Yes (Hospitalization)
  Sender: FDA-Public Use
  Company Number: 229272

PATIENT
  Age: 67 Year
  Sex: Female

DRUGS (11)
  1. AVASTIN [Suspect]
     Indication: NON-SMALL CELL LUNG CANCER
     Dosage: 1116 MG, INTRAVENOUS
     Route: 042
     Dates: start: 20060531, end: 20060817
  2. DOCETAXEL (DOCETAXEL) [Suspect]
     Indication: NON-SMALL CELL LUNG CANCER
     Dosage: 140 MG, INTRAVENOUS
     Route: 042
     Dates: start: 20060531, end: 20060817
  3. ATENOLOL [Concomitant]
  4. ZOCOR [Concomitant]
  5. CARBOPLATIN [Suspect]
     Indication: NON-SMALL CELL LUNG CANCER
     Dosage: 578 MG, INTRAVENOUS
     Route: 042
     Dates: start: 20060531, end: 20060817
  6. ZOFRAN [Concomitant]
  7. CIPROFLOXACIN [Concomitant]
  8. MARINOL [Concomitant]
  9. LIDOCAINE OINTMENT (LIDOCAINE) [Concomitant]
  10. ASTELIN [Concomitant]
  11. COMPAZINE [Concomitant]

REACTIONS (17)
  - BLOOD ALBUMIN DECREASED [None]
  - BLOOD CHLORIDE DECREASED [None]
  - BLOOD GLUCOSE INCREASED [None]
  - BLOOD LACTATE DEHYDROGENASE INCREASED [None]
  - BLOOD PRESSURE DIASTOLIC DECREASED [None]
  - BLOOD SODIUM DECREASED [None]
  - CHILLS [None]
  - EPISTAXIS [None]
  - FAECES DISCOLOURED [None]
  - FEBRILE NEUTROPENIA [None]
  - HAEMATOCRIT DECREASED [None]
  - HAEMOGLOBIN DECREASED [None]
  - NAUSEA [None]
  - RED BLOOD CELL COUNT DECREASED [None]
  - URINARY TRACT INFECTION ENTEROCOCCAL [None]
  - VOMITING [None]
  - WHITE BLOOD CELL COUNT DECREASED [None]
